FAERS Safety Report 5613179-0 (Version None)
Quarter: 2008Q1

REPORT INFORMATION
  Report Type: 
  Country: None (occurrence: None)
  Receive Date: 20080129
  Receipt Date: 20080114
  Transmission Date: 20080703
  Serious: Yes (Other)
  Sender: FDA-Public Use
  Company Number: 02100-EUR-08-0017

PATIENT
  Age: 74 Year
  Sex: Male

DRUGS (3)
  1. CILOSTAZOL [Suspect]
     Indication: INTERMITTENT CLAUDICATION
     Dosage: ORAL
     Route: 048
     Dates: start: 20070125
  2. CLOPIDOGREL BISULFATE [Concomitant]
  3. LISIGAMA (HYDROCHLOROTHIAZIDE, LISINOPRIL) [Concomitant]

REACTIONS (1)
  - BRONCHIAL CARCINOMA [None]
